FAERS Safety Report 12467944 (Version 1)
Quarter: 2016Q2

REPORT INFORMATION
  Report Type: Spontaneous
  Country: US (occurrence: None)
  Receive Date: 20160614
  Receipt Date: 20160614
  Transmission Date: 20160815
  Serious: Yes (Hospitalization)
  Sender: FDA-Public Use
  Company Number: None

PATIENT
  Age: 58 Year
  Sex: Male

DRUGS (1)
  1. ASPIRIN. [Suspect]
     Active Substance: ASPIRIN
     Indication: CORONARY ARTERIAL STENT INSERTION
     Route: 048
     Dates: start: 20100427, end: 20160515

REACTIONS (4)
  - Gastric disorder [None]
  - Upper gastrointestinal haemorrhage [None]
  - Varices oesophageal [None]
  - Coagulopathy [None]

NARRATIVE: CASE EVENT DATE: 20160515
